FAERS Safety Report 7489369-1 (Version None)
Quarter: 2011Q2

REPORT INFORMATION
  Report Type: 
  Country: None (occurrence: None)
  Receive Date: 20110518
  Receipt Date: 20110505
  Transmission Date: 20111010
  Serious: Yes (Hospitalization)
  Sender: FDA-Public Use
  Company Number: US-JNJFOC-20110409572

PATIENT
  Sex: Female
  Weight: 65.77 kg

DRUGS (4)
  1. NICOTINE PATCH [Concomitant]
     Indication: SMOKING CESSATION THERAPY
  2. TOPAMAX [Suspect]
     Indication: MIGRAINE PROPHYLAXIS
     Route: 048
     Dates: start: 20010101
  3. ZOVIA 1/35E-21 [Concomitant]
     Indication: CONTRACEPTION
     Route: 048
     Dates: start: 20110301
  4. LOESTRIN 24 FE [Concomitant]
     Indication: CONTRACEPTION
     Dates: start: 20100101, end: 20110301

REACTIONS (11)
  - DIARRHOEA [None]
  - VOMITING [None]
  - MALAISE [None]
  - ABNORMAL FAECES [None]
  - PRODUCT ODOUR ABNORMAL [None]
  - FUNGAL INFECTION [None]
  - NAUSEA [None]
  - DEHYDRATION [None]
  - FATIGUE [None]
  - PYREXIA [None]
  - CHILLS [None]
